FAERS Safety Report 21061499 (Version 5)
Quarter: 2023Q1

REPORT INFORMATION
  Report Type: Spontaneous
  Country: US (occurrence: US)
  Receive Date: 20220709
  Receipt Date: 20230313
  Transmission Date: 20230417
  Serious: Yes (Other)
  Sender: FDA-Public Use
  Company Number: US-BRISTOL-MYERS SQUIBB COMPANY-2022-070194

PATIENT
  Age: 46 Year
  Sex: Female

DRUGS (5)
  1. POMALYST [Suspect]
     Active Substance: POMALIDOMIDE
     Indication: Plasma cell myeloma
     Route: 048
     Dates: start: 20220224
  2. POMALYST [Suspect]
     Active Substance: POMALIDOMIDE
     Route: 048
     Dates: start: 202203
  3. POMALYST [Suspect]
     Active Substance: POMALIDOMIDE
     Dosage: 2 WEEKS ON AND 2 WEEKS OFF
     Route: 048
  4. DARZALEX [Concomitant]
     Active Substance: DARATUMUMAB
     Indication: Plasma cell myeloma
     Route: 058
  5. D E X [DEXAMETHASONE] [Concomitant]
     Indication: Plasma cell myeloma
     Route: 048

REACTIONS (5)
  - Cytopenia [Recovering/Resolving]
  - Neutrophil count decreased [Unknown]
  - Off label use [Unknown]
  - Memory impairment [Unknown]
  - Nasopharyngitis [Unknown]

NARRATIVE: CASE EVENT DATE: 20220630
